FAERS Safety Report 6222841-0 (Version None)
Quarter: 2009Q2

REPORT INFORMATION
  Report Type: 
  Country: None (occurrence: None)
  Receive Date: 20090611
  Receipt Date: 20090605
  Transmission Date: 20091009
  Serious: Yes (Disabling)
  Sender: FDA-Public Use
  Company Number: B0573591A

PATIENT
  Sex: Male

DRUGS (10)
  1. FLUTICASONE PROPIONATE [Suspect]
     Indication: ASTHMA
     Route: 055
     Dates: end: 20090301
  2. ALDACTONE [Concomitant]
     Route: 065
  3. FRUSEMIDE [Concomitant]
     Route: 065
  4. PANTOPRAZOLE SODIUM [Concomitant]
     Route: 065
  5. GLICLAZIDE [Concomitant]
     Route: 065
  6. PROPRANOLOL HYDROCHLORIDE [Concomitant]
     Route: 065
  7. METFORMIN [Concomitant]
     Route: 065
  8. VALACYCLOVIR HCL [Concomitant]
     Route: 065
  9. BACTRIM [Concomitant]
     Route: 065
  10. FLUCONAZOLE [Concomitant]
     Route: 065

REACTIONS (5)
  - CUSHING'S SYNDROME [None]
  - INFECTION [None]
  - KAPOSI'S SARCOMA [None]
  - OSTEONECROSIS [None]
  - OSTEOPOROTIC FRACTURE [None]
